FAERS Safety Report 10214246 (Version 1)
Quarter: 2014Q2

REPORT INFORMATION
  Report Type: Spontaneous
  Country: US (occurrence: None)
  Receive Date: 20140602
  Receipt Date: 20140602
  Transmission Date: 20141212
  Serious: No
  Sender: FDA-Public Use
  Company Number: None

PATIENT
  Age: 5 Year
  Sex: Male
  Weight: 23.9 kg

DRUGS (9)
  1. NORDITROPIN [Suspect]
     Dosage: NORDITROPIN QD SUBCUTANEOUS
     Route: 058
  2. DESMOSPRESSIN [Concomitant]
  3. DIAZEPAM [Concomitant]
  4. HYDROCORTOSONE [Concomitant]
  5. LEVOTHYROXINE [Concomitant]
  6. CHLORAZEPATE ELIXIR [Concomitant]
  7. RUFAMIDE [Concomitant]
  8. SOMATROPIN ( NORDITROPIN FLEXPRO PEN 5 MG/1.5) [Concomitant]
  9. ZONISAMIDE [Concomitant]

REACTIONS (2)
  - Rash maculo-papular [None]
  - Rash generalised [None]
